FAERS Safety Report 13822538 (Version 2)
Quarter: 2017Q4

REPORT INFORMATION
  Report Type: Spontaneous
  Country: DE (occurrence: DE)
  Receive Date: 20170801
  Receipt Date: 20171025
  Transmission Date: 20180320
  Serious: Yes (Death, Hospitalization)
  Sender: FDA-Public Use
  Company Number: DE-PURDUE PHARMA-GBR-2017-0047255

PATIENT

DRUGS (10)
  1. METHADONE [Suspect]
     Active Substance: METHADONE HYDROCHLORIDE
     Indication: PAIN
     Dosage: 14 ML, DAILY (8ML AM, 6ML PM)
     Route: 048
     Dates: start: 20170608, end: 20170608
  2. SELEN                              /00075001/ [Concomitant]
     Dosage: UNK
  3. METHADONE [Suspect]
     Active Substance: METHADONE HYDROCHLORIDE
     Indication: TUMOUR PAIN
  4. PANTOZOL [Concomitant]
     Active Substance: PANTOPRAZOLE SODIUM
     Indication: ABDOMINAL PAIN UPPER
     Dosage: 40 MG, DAILY
     Route: 048
  5. SELEN                              /00075001/ [Concomitant]
     Indication: CHEMOTHERAPY
     Dosage: 1 DF, DAILY
     Route: 048
  6. BISOPROLOL [Concomitant]
     Active Substance: BISOPROLOL
     Indication: HYPERTENSION
     Dosage: 5 MG, DAILY
     Route: 048
  7. L-THYROXIN [Concomitant]
     Active Substance: LEVOTHYROXINE SODIUM
     Indication: HYPOTHYROIDISM
     Dosage: 25 MCG, DAILY
     Route: 048
  8. TARGIN [Suspect]
     Active Substance: NALOXONE HYDROCHLORIDE\OXYCODONE HYDROCHLORIDE
     Indication: TUMOUR PAIN
     Dosage: 30/15 MG, TID
     Route: 048
     Dates: end: 20170609
  9. TARGIN [Suspect]
     Active Substance: NALOXONE HYDROCHLORIDE\OXYCODONE HYDROCHLORIDE
     Indication: PAIN
     Dosage: 80/40 MG, DAILY (30/15MG AM, 30/15MG LUNCH, 20/10MG PM)
     Route: 048
     Dates: start: 20170610
  10. METHADONE [Suspect]
     Active Substance: METHADONE HYDROCHLORIDE
     Indication: PAIN
     Dosage: 6 ML, DAILY
     Route: 048
     Dates: start: 20170610, end: 20170610

REACTIONS (6)
  - Incorrect drug administration duration [Unknown]
  - Vomiting [Unknown]
  - Cyanosis [Unknown]
  - Sudden death [Fatal]
  - Toxicity to various agents [Fatal]
  - Disturbance in attention [Unknown]

NARRATIVE: CASE EVENT DATE: 20170610
